FAERS Safety Report 6978638-7 (Version None)
Quarter: 2010Q3

REPORT INFORMATION
  Report Type: 
  Country: None (occurrence: None)
  Receive Date: 20100913
  Receipt Date: 20100901
  Transmission Date: 20110219
  Serious: Yes (Hospitalization)
  Sender: FDA-Public Use
  Company Number: A0808176A

PATIENT
  Age: 78 Year
  Sex: Female

DRUGS (6)
  1. AVANDIA [Suspect]
     Dates: start: 20010101, end: 20050101
  2. LIPITOR [Concomitant]
  3. COZAAR [Concomitant]
  4. GLUCOTROL [Concomitant]
  5. PEPCID [Concomitant]
  6. ALLOPURINOL [Concomitant]

REACTIONS (4)
  - BLINDNESS [None]
  - CARDIOVASCULAR DISORDER [None]
  - RETINAL VEIN THROMBOSIS [None]
  - TRANSIENT ISCHAEMIC ATTACK [None]
